FAERS Safety Report 7216155-X (Version None)
Quarter: 2011Q1

REPORT INFORMATION
  Report Type: 
  Country: None (occurrence: None)
  Receive Date: 20110107
  Receipt Date: 20101220
  Transmission Date: 20110831
  Serious: No
  Sender: FDA-Public Use
  Company Number: US-B.I. PHARMACEUTICALS,INC./RIDGEFIELD-2010-BP-15009BP

PATIENT
  Sex: Female

DRUGS (5)
  1. CARDIZEM [Concomitant]
     Indication: HYPERTENSION
  2. PRADAXA [Suspect]
     Indication: ATRIAL FIBRILLATION
     Dosage: 300 MG
     Route: 048
     Dates: start: 20101203
  3. INDAPAMIDE [Concomitant]
     Indication: PROPHYLAXIS
  4. DIGOXIN [Concomitant]
     Indication: HEART RATE IRREGULAR
  5. DIOVAN [Concomitant]
     Indication: HYPERTENSION

REACTIONS (1)
  - HAIR GROWTH ABNORMAL [None]
